FAERS Safety Report 8432631-6 (Version None)
Quarter: 2012Q2

REPORT INFORMATION
  Report Type: 
  Country: None (occurrence: None)
  Receive Date: 20120613
  Receipt Date: 20120604
  Transmission Date: 20120825
  Serious: Yes (Hospitalization)
  Sender: FDA-Public Use
  Company Number: US-BAYER-201031840NA

PATIENT
  Age: 44 Year
  Sex: Female
  Weight: 127 kg

DRUGS (13)
  1. YAZ [Suspect]
     Indication: ACNE
     Dosage: UNK
     Dates: start: 20081020
  2. YAZ [Suspect]
     Dosage: UNK
     Dates: start: 20081216
  3. TOPAMAX [Concomitant]
     Dosage: UNK
     Dates: start: 20080129, end: 20081201
  4. PROPRANOLOL [Concomitant]
     Dosage: UNK
     Dates: start: 20081103, end: 20081130
  5. TRAMADOL HCL [Concomitant]
     Dosage: 50 MG, EVERY 6 HOURS AS NEEDED
     Route: 048
  6. COMPAZINE [Concomitant]
  7. MINOCYCLINE HYDROCHLORIDE [Concomitant]
     Indication: ACNE
     Dosage: UNK
     Dates: start: 20081210
  8. IMITREX [Concomitant]
     Dosage: 50 MG, 3X DAY AS NEEDED
     Route: 048
  9. ALPRAZOLAM [Concomitant]
     Dosage: 0.25 MG, UNK
     Route: 048
     Dates: start: 20081212, end: 20081221
  10. FROVA [Concomitant]
     Indication: MIGRAINE
     Dosage: UNK
     Dates: start: 20081214
  11. MAXALT [Concomitant]
     Dosage: UNK
     Dates: start: 20081013
  12. PERCOCET [Concomitant]
     Indication: PAIN
     Dosage: 1 EVERY 4 HOURS AS NEEDED
     Route: 048
  13. TREXIMET [Concomitant]

REACTIONS (3)
  - DEPRESSION [None]
  - PULMONARY EMBOLISM [None]
  - ANXIETY [None]
